FAERS Safety Report 5601200-5 (Version None)
Quarter: 2008Q1

REPORT INFORMATION
  Report Type: 
  Country: None (occurrence: None)
  Receive Date: 20080122
  Receipt Date: 20080122
  Transmission Date: 20080703
  Serious: Yes (Other)
  Sender: FDA-Public Use
  Company Number: None

PATIENT
  Age: 57 Year
  Sex: Female
  Weight: 68.0396 kg

DRUGS (4)
  1. HUMIRA [Suspect]
     Indication: RHEUMATOID ARTHRITIS
     Dosage: 40MG EVERY TWO WEEKS SQ
     Route: 058
     Dates: start: 20060118, end: 20071003
  2. FOLIC ACID [Concomitant]
  3. METHOTREXATE [Concomitant]
  4. SYNTHROID [Concomitant]

REACTIONS (1)
  - MELANOCYTIC NAEVUS [None]
